FAERS Safety Report 5603019-8 (Version None)
Quarter: 2008Q1

REPORT INFORMATION
  Report Type: 
  Country: None (occurrence: None)
  Receive Date: 20080125
  Receipt Date: 20080115
  Transmission Date: 20080703
  Serious: Yes (Other)
  Sender: FDA-Public Use
  Company Number: US-MERCK-0801USA03093

PATIENT
  Age: 37 Year
  Sex: Female

DRUGS (2)
  1. SINGULAIR [Suspect]
     Indication: COUGH
     Route: 048
  2. SINGULAIR [Suspect]
     Indication: ASTHMA
     Route: 048

REACTIONS (4)
  - ALLERGIC GRANULOMATOUS ANGIITIS [None]
  - CARDIOMEGALY [None]
  - NASAL POLYPS [None]
  - PERICARDIAL EFFUSION [None]
